FAERS Safety Report 17875548 (Version 2)
Quarter: 2020Q2

REPORT INFORMATION
  Report Type: Report from Study
  Country: IN (occurrence: IN)
  Receive Date: 20200609
  Receipt Date: 20200622
  Transmission Date: 20200714
  Serious: Yes (Hospitalization)
  Sender: FDA-Public Use
  Company Number: NVSC2020IN159898

PATIENT
  Age: 58 Year
  Sex: Female

DRUGS (5)
  1. GUDCEF CV [Concomitant]
     Indication: PRODUCT USED FOR UNKNOWN INDICATION
     Dosage: 200 MG, BID(15 DAYS)
     Route: 065
     Dates: start: 202005
  2. PANTOP D SR [Concomitant]
     Indication: PRODUCT USED FOR UNKNOWN INDICATION
     Dosage: UNK UNK, BID(15 DAYS)
     Route: 065
     Dates: start: 202005
  3. SHELCAL [Concomitant]
     Active Substance: CALCIUM CARBONATE\CHOLECALCIFEROL
     Indication: PRODUCT USED FOR UNKNOWN INDICATION
     Dosage: UNK UNK, QD (500)(10 DAYS)
     Route: 065
     Dates: start: 202005
  4. SCAPHO [Suspect]
     Active Substance: SECUKINUMAB
     Indication: PSORIATIC ARTHROPATHY
     Dosage: 150 MG, QMO
     Route: 058
     Dates: start: 20200222
  5. TENLIMAC [Concomitant]
     Indication: PRODUCT USED FOR UNKNOWN INDICATION
     Dosage: UNK UNK, (500)BID FOR 15 DAYS
     Route: 065
     Dates: start: 2020

REACTIONS (4)
  - Accident [Unknown]
  - Inappropriate schedule of product administration [Unknown]
  - Lower limb fracture [Unknown]
  - Product dose omission [Unknown]

NARRATIVE: CASE EVENT DATE: 202004
